FAERS Safety Report 11252645 (Version 2)
Quarter: 2015Q3

REPORT INFORMATION
  Report Type: Spontaneous
  Country: US (occurrence: US)
  Receive Date: 20150708
  Receipt Date: 20150930
  Transmission Date: 20151125
  Serious: Yes (Death, Other)
  Sender: FDA-Public Use
  Company Number: US-GLAXOSMITHKLINE-US2015GSK097677

PATIENT
  Age: 63 Year
  Sex: Male
  Weight: 71.6 kg

DRUGS (1)
  1. MEKINIST [Suspect]
     Active Substance: TRAMETINIB DIMETHYL SULFOXIDE
     Indication: LUNG NEOPLASM MALIGNANT
     Dosage: 0.5 MG, QD
     Route: 048
     Dates: start: 20150415, end: 20150515

REACTIONS (3)
  - Thrombocytopenia [Not Recovered/Not Resolved]
  - Lung neoplasm malignant [Fatal]
  - Metastases to liver [Fatal]

NARRATIVE: CASE EVENT DATE: 20150507
